FAERS Safety Report 17728301 (Version 1)
Quarter: 2020Q2

REPORT INFORMATION
  Report Type: Spontaneous
  Country: US (occurrence: US)
  Receive Date: 20200430
  Receipt Date: 20200430
  Transmission Date: 20200714
  Serious: No
  Sender: FDA-Public Use
  Company Number: US-SA-2020SA112937

PATIENT
  Age: 72 Year
  Sex: Male

DRUGS (2)
  1. DESONIDE. [Concomitant]
     Active Substance: DESONIDE
  2. DUPIXENT [Suspect]
     Active Substance: DUPILUMAB
     Indication: NASAL POLYPS
     Dosage: 300 MG, QOW
     Route: 058
     Dates: start: 20200326

REACTIONS (1)
  - Muscle tightness [Unknown]
